FAERS Safety Report 5805167-6 (Version None)
Quarter: 2008Q3

REPORT INFORMATION
  Report Type: 
  Country: None (occurrence: None)
  Receive Date: 20080709
  Receipt Date: 20080701
  Transmission Date: 20090109
  Serious: Yes (Other)
  Sender: FDA-Public Use
  Company Number: US-MERCK-0807USA00417

PATIENT
  Age: 73 Year
  Sex: Female

DRUGS (2)
  1. FOSAMAX [Suspect]
     Indication: OSTEOPOROSIS
     Route: 048
     Dates: start: 19990101, end: 20080601
  2. SYNTHROID [Concomitant]
     Route: 065

REACTIONS (4)
  - ARTHROPATHY [None]
  - GINGIVAL DISORDER [None]
  - PAIN IN JAW [None]
  - THYROID DISORDER [None]
